FAERS Safety Report 8810803 (Version 1)
Quarter: 2012Q4

REPORT INFORMATION
  Report Type: Report from Study
  Country: CA (occurrence: CA)
  Receive Date: 20120927
  Receipt Date: 20120927
  Transmission Date: 20130627
  Serious: Yes (Hospitalization)
  Sender: FDA-Public Use
  Company Number: CA-JNJFOC-20120908152

PATIENT
  Age: 59 None
  Sex: Female
  Weight: 58 kg

DRUGS (4)
  1. REMICADE [Suspect]
     Indication: CROHN^S DISEASE
     Dosage: 14-NOV-2012 (reported future date)
     Route: 042
  2. SYNTHROID [Concomitant]
     Route: 065
  3. PREDNISONE [Concomitant]
     Route: 065
  4. ACLASTA [Concomitant]
     Route: 065

REACTIONS (2)
  - Large intestine perforation [Recovering/Resolving]
  - Gastrointestinal infection [Recovering/Resolving]
